FAERS Safety Report 8421996-7 (Version None)
Quarter: 2012Q2

REPORT INFORMATION
  Report Type: 
  Country: None (occurrence: None)
  Receive Date: 20120608
  Receipt Date: 20120601
  Transmission Date: 20120825
  Serious: Yes (Hospitalization)
  Sender: FDA-Public Use
  Company Number: AT-UCBSA-058667

PATIENT
  Sex: Female
  Weight: 56 kg

DRUGS (8)
  1. ZOLEDRONOC ACID [Concomitant]
     Dosage: DOSE AS USED: 5 MG
     Route: 042
  2. SYMBICORT [Concomitant]
     Route: 048
  3. OLEOVITE [Concomitant]
  4. ATORVASTATIN CALCIUM [Concomitant]
     Indication: HYPERLIPIDAEMIA
     Route: 048
  5. FOLIC ACID [Concomitant]
     Route: 048
  6. XEFO [Concomitant]
     Route: 048
  7. CIMZIA [Suspect]
     Indication: RHEUMATOID ARTHRITIS
     Route: 058
     Dates: start: 20111201, end: 20120516
  8. METHOTREXATE [Concomitant]
     Indication: RHEUMATOID ARTHRITIS
     Route: 048

REACTIONS (1)
  - LOCALISED OEDEMA [None]
